FAERS Safety Report 19573637 (Version 4)
Quarter: 2023Q4

REPORT INFORMATION
  Report Type: Report from Study
  Country: US (occurrence: US)
  Receive Date: 20210717
  Receipt Date: 20231110
  Transmission Date: 20240110
  Serious: Yes (Hospitalization)
  Sender: FDA-Public Use
  Company Number: US-SA-2019SA056819

PATIENT
  Age: 61 Year
  Sex: Female

DRUGS (1)
  1. VANDETANIB [Suspect]
     Active Substance: VANDETANIB
     Indication: Thyroid cancer
     Dosage: 100 MG, QD
     Route: 048
     Dates: start: 20150911

REACTIONS (5)
  - Abdominal pain upper [Recovering/Resolving]
  - Influenza [Unknown]
  - Abdominal discomfort [Unknown]
  - Illness [Unknown]
  - Off label use [Unknown]
